FAERS Safety Report 10218764 (Version 5)
Quarter: 2014Q3

REPORT INFORMATION
  Report Type: Spontaneous
  Country: JP (occurrence: JP)
  Receive Date: 20140605
  Receipt Date: 20140701
  Transmission Date: 20150326
  Serious: Yes (Hospitalization, Other)
  Sender: FDA-Public Use
  Company Number: JP-PFIZER INC-2014149220

PATIENT
  Age: 71 Year
  Sex: Male

DRUGS (12)
  1. NICHISTATE [Concomitant]
     Active Substance: TICLOPIDINE
     Dosage: UNK
     Dates: start: 20140416
  2. SIMVASTATIN. [Suspect]
     Active Substance: SIMVASTATIN
     Indication: DYSLIPIDAEMIA
     Dosage: UNK
     Dates: end: 20140401
  3. NICHISTATE [Concomitant]
     Active Substance: TICLOPIDINE
     Dosage: UNK
  4. BERIZYM [Suspect]
     Active Substance: CELLULASE\DIASTASE\LIPASE
     Dosage: UNK
     Dates: end: 20140401
  5. GASTER [Suspect]
     Active Substance: FAMOTIDINE
     Dosage: UNK
     Route: 048
     Dates: start: 201306, end: 20140401
  6. NICHISTATE [Concomitant]
     Active Substance: TICLOPIDINE
     Dosage: UNK
     Dates: start: 20140514
  7. CELECOX [Suspect]
     Active Substance: CELECOXIB
     Dosage: 200 MG, DAILY
     Route: 048
     Dates: start: 201309, end: 20140328
  8. NICERGOLINE [Suspect]
     Active Substance: NICERGOLINE
     Dosage: UNK
     Dates: end: 20140401
  9. ENSURE [Concomitant]
     Active Substance: AMINO ACIDS\DEXTROSE\ELECTROLYTES NOS\SOYBEAN OIL\VITAMINS
  10. EPINASTINE HYDROCHLORIDE. [Concomitant]
     Active Substance: EPINASTINE HYDROCHLORIDE
     Dosage: UNK
     Dates: end: 20131216
  11. BROTIZOLAM [Concomitant]
     Active Substance: BROTIZOLAM
     Dosage: UNK
     Dates: start: 201307, end: 20140401
  12. TRYPTANOL [Concomitant]
     Active Substance: AMITRIPTYLINE
     Dosage: UNK
     Dates: start: 201401, end: 20140320

REACTIONS (17)
  - Fatigue [Unknown]
  - Pleural effusion [Recovered/Resolved]
  - Pyrexia [Recovered/Resolved]
  - Decreased appetite [Unknown]
  - Aspartate aminotransferase decreased [Recovered/Resolved]
  - Liver disorder [Unknown]
  - Pyelonephritis [Unknown]
  - Hepatic function abnormal [Recovered/Resolved]
  - Pericardial effusion [Recovered/Resolved]
  - Antinuclear antibody increased [Unknown]
  - Fungal infection [Unknown]
  - Pleurisy [Unknown]
  - Lupus-like syndrome [Recovered/Resolved]
  - Chills [Unknown]
  - Alanine aminotransferase decreased [Recovered/Resolved]
  - Respiratory tract infection [Unknown]
  - Chronic hepatitis [Unknown]

NARRATIVE: CASE EVENT DATE: 201310
